FAERS Safety Report 16819384 (Version 2)
Quarter: 2019Q3

REPORT INFORMATION
  Report Type: Spontaneous
  Country: US (occurrence: US)
  Receive Date: 20190917
  Receipt Date: 20190918
  Transmission Date: 20191005
  Serious: No
  Sender: FDA-Public Use
  Company Number: US-TEVA-2019-US-1107414

PATIENT
  Sex: Female

DRUGS (1)
  1. PRAZOSIN HYDROCHLORIDE TEVA [Suspect]
     Active Substance: PRAZOSIN HYDROCHLORIDE
     Indication: NIGHTMARE
     Route: 065

REACTIONS (5)
  - Treatment noncompliance [Unknown]
  - Product use in unapproved indication [Unknown]
  - Product prescribing error [Unknown]
  - Heart rate increased [Recovering/Resolving]
  - Feeling abnormal [Recovering/Resolving]
